FAERS Safety Report 13845997 (Version 4)
Quarter: 2019Q1

REPORT INFORMATION
  Report Type: Report from Study
  Country: JP (occurrence: JP)
  Receive Date: 20170808
  Receipt Date: 20190201
  Transmission Date: 20190417
  Serious: Yes (Death, Hospitalization, Other)
  Sender: FDA-Public Use
  Company Number: JP-SHIRE-JP201512341AA

PATIENT
  Age: 72 Year
  Sex: Male

DRUGS (13)
  1. ECARD [Concomitant]
     Active Substance: CANDESARTAN CILEXETIL\HYDROCHLOROTHIAZIDE
     Indication: PRODUCT USED FOR UNKNOWN INDICATION
     Dosage: UNK, UNKNOWN
     Route: 048
     Dates: end: 20150923
  2. 422 (ANAGRELIDE) [Suspect]
     Active Substance: ANAGRELIDE
     Indication: ESSENTIAL THROMBOCYTHAEMIA
     Dosage: 2 MG/DAY
     Route: 048
     Dates: start: 20150508, end: 20150930
  3. ANCARON [Concomitant]
     Active Substance: AMIODARONE HYDROCHLORIDE
     Indication: PRODUCT USED FOR UNKNOWN INDICATION
     Dosage: UNK, UNKNOWN
     Route: 048
     Dates: end: 20150812
  4. HYDREA [Concomitant]
     Active Substance: HYDROXYUREA
     Indication: ESSENTIAL THROMBOCYTHAEMIA
     Dosage: 2000 MG, 1X/DAY:QD
     Route: 048
     Dates: end: 20150625
  5. 422 (ANAGRELIDE) [Suspect]
     Active Substance: ANAGRELIDE
     Dosage: 1 MG/DAY
     Route: 048
     Dates: start: 20150403, end: 20150430
  6. BAYASPIRIN [Concomitant]
     Active Substance: ASPIRIN
     Dosage: UNK, UNKNOWN
     Route: 065
     Dates: end: 20150923
  7. WARFARIN [Concomitant]
     Active Substance: WARFARIN
     Indication: ESSENTIAL THROMBOCYTHAEMIA
     Dosage: UNK
  8. BAYASPIRIN [Concomitant]
     Active Substance: ASPIRIN
     Indication: PRODUCT USED FOR UNKNOWN INDICATION
     Dosage: UNK, UNKNOWN
     Route: 065
     Dates: end: 20150923
  9. 422 (ANAGRELIDE) [Suspect]
     Active Substance: ANAGRELIDE
     Dosage: 0.5 MG/DAY
     Route: 048
     Dates: start: 20150320, end: 20150402
  10. HYDREA [Concomitant]
     Active Substance: HYDROXYUREA
     Dosage: UNK, UNKNOWN
     Route: 048
     Dates: start: 20150626, end: 20150930
  11. 422 (ANAGRELIDE) [Suspect]
     Active Substance: ANAGRELIDE
     Dosage: 1.5 MG/DAY
     Route: 048
     Dates: start: 20150501, end: 20150507
  12. ELIQUIS [Concomitant]
     Active Substance: APIXABAN
     Indication: PRODUCT USED FOR UNKNOWN INDICATION
     Dosage: UNK, UNKNOWN
     Route: 048
     Dates: end: 20150920
  13. BUSULFAN. [Concomitant]
     Active Substance: BUSULFAN
     Indication: POLYCYTHAEMIA VERA
     Dosage: UNK, UNKNOWN
     Route: 065
     Dates: start: 1989, end: 200402

REACTIONS (3)
  - Gingival bleeding [Recovered/Resolved]
  - Renal impairment [Recovered/Resolved]
  - Cerebral haemorrhage [Fatal]

NARRATIVE: CASE EVENT DATE: 20150626
